FAERS Safety Report 4466029-2 (Version None)
Quarter: 2004Q3

REPORT INFORMATION
  Report Type: 
  Country: None (occurrence: None)
  Receive Date: 20040930
  Receipt Date: 20040930
  Transmission Date: 20050211
  Serious: No
  Sender: FDA-Public Use
  Company Number: None

PATIENT
  Age: 60 Year
  Sex: Male
  Weight: 74.3899 kg

DRUGS (1)
  1. ZOCOR  10 MG  MERC [Suspect]
     Dosage: 1 PER DAY   ORAL
     Route: 048
     Dates: start: 20030201, end: 20040820

REACTIONS (9)
  - ACTIVITIES OF DAILY LIVING IMPAIRED [None]
  - APTYALISM [None]
  - ARTHROPATHY [None]
  - DIFFICULTY IN WALKING [None]
  - DYSPHAGIA [None]
  - HYPOAESTHESIA [None]
  - LACRIMATION INCREASED [None]
  - MUSCLE DISORDER [None]
  - POLYNEUROPATHY [None]
